FAERS Safety Report 20456479 (Version 1)
Quarter: 2022Q1

REPORT INFORMATION
  Report Type: Report from Study
  Country: CA (occurrence: CA)
  Receive Date: 20220210
  Receipt Date: 20220210
  Transmission Date: 20220423
  Serious: Yes (Death, Hospitalization, Other)
  Sender: FDA-Public Use
  Company Number: CA-BAYER-2022A016877

PATIENT
  Age: 83 Year
  Sex: Female

DRUGS (12)
  1. CIPROFLOXACIN [Suspect]
     Active Substance: CIPROFLOXACIN
     Route: 048
  2. OMALIZUMAB [Concomitant]
     Active Substance: OMALIZUMAB
  3. ROSUVASTATIN [Concomitant]
     Active Substance: ROSUVASTATIN
  4. SPIRIVA [Concomitant]
     Active Substance: TIOTROPIUM BROMIDE MONOHYDRATE
  5. ALBUTEROL [Concomitant]
     Active Substance: ALBUTEROL
  6. ALLOPURINOL [Concomitant]
     Active Substance: ALLOPURINOL
  7. NIFEDIPINE [Concomitant]
     Active Substance: NIFEDIPINE
  8. AZITHROMYCIN [Concomitant]
     Active Substance: AZITHROMYCIN
  9. FORMOTEROL FUMARATE\MOMETASONE FUROATE [Concomitant]
     Active Substance: FORMOTEROL FUMARATE\MOMETASONE FUROATE
  10. CLOPIDOGREL [Concomitant]
     Active Substance: CLOPIDOGREL BISULFATE
  11. CHLORTHALIDONE [Concomitant]
     Active Substance: CHLORTHALIDONE
  12. PREDNISONE [Concomitant]
     Active Substance: PREDNISONE

REACTIONS (19)
  - Pneumonia [Fatal]
  - Neuropathy peripheral [Fatal]
  - Blood pressure fluctuation [Fatal]
  - Body temperature decreased [Fatal]
  - Erythema [Fatal]
  - Peripheral swelling [Fatal]
  - Pain in extremity [Fatal]
  - Dyspnoea [Fatal]
  - Urinary tract infection [Fatal]
  - Wheezing [Fatal]
  - Chronic obstructive pulmonary disease [Fatal]
  - COVID-19 [Fatal]
  - Gait disturbance [Fatal]
  - Drug hypersensitivity [Fatal]
  - Asthma [Fatal]
  - Localised infection [Fatal]
  - Osteomyelitis [Fatal]
  - Rales [Fatal]
  - Cough [Fatal]
